FAERS Safety Report 18343808 (Version 1)
Quarter: 2020Q4

REPORT INFORMATION
  Report Type: Spontaneous
  Country: US (occurrence: US)
  Receive Date: 20201002
  Receipt Date: 20201002
  Transmission Date: 20210114
  Serious: Yes (Other)
  Sender: FDA-Public Use
  Company Number: None

PATIENT
  Age: 78 Year
  Sex: Female

DRUGS (5)
  1. VASCEPA [Concomitant]
     Active Substance: ICOSAPENT ETHYL
  2. LEVOTHYROXINE. [Concomitant]
     Active Substance: LEVOTHYROXINE
  3. OLOPATADINE. [Concomitant]
     Active Substance: OLOPATADINE
  4. PROAIR HFA [Concomitant]
     Active Substance: ALBUTEROL SULFATE
  5. REPATHA [Suspect]
     Active Substance: EVOLOCUMAB
     Indication: HYPERLIPIDAEMIA
     Dosage: 2ML EVERY 2 WEEKS UNDER THE SKIN
     Route: 058
     Dates: start: 20200428, end: 20200820

REACTIONS (1)
  - Myalgia [None]

NARRATIVE: CASE EVENT DATE: 20200428
